FAERS Safety Report 6332177-5 (Version None)
Quarter: 2009Q3

REPORT INFORMATION
  Report Type: 
  Country: None (occurrence: None)
  Receive Date: 20090828
  Receipt Date: 20090817
  Transmission Date: 20100115
  Serious: Yes (Other)
  Sender: FDA-Public Use
  Company Number: US-RB-019768-09

PATIENT
  Age: 45 Year
  Sex: Female
  Weight: 49.5 kg

DRUGS (6)
  1. MUCINEX DM [Suspect]
     Dosage: TAKING 3 DOSES OF 2 TABLETS.
     Route: 048
     Dates: start: 20090101, end: 20090717
  2. MUCINEX DM [Suspect]
     Dosage: TAKING 3 DOSES OF 2 TABLETS.
     Route: 048
     Dates: start: 20090101, end: 20090717
  3. CELEXA [Concomitant]
  4. TOPAMAX [Concomitant]
  5. XANAX [Concomitant]
  6. FAMVIR [Concomitant]

REACTIONS (1)
  - SYNCOPE [None]
